FAERS Safety Report 11012667 (Version 2)
Quarter: 2015Q2

REPORT INFORMATION
  Report Type: Spontaneous
  Country: US (occurrence: None)
  Receive Date: 20150409
  Receipt Date: 20150617
  Transmission Date: 20150821
  Serious: No
  Sender: FDA-Public Use
  Company Number: 2015050152

PATIENT
  Age: 18 Year
  Sex: Female

DRUGS (2)
  1. STIMATE [Suspect]
     Active Substance: DESMOPRESSIN ACETATE
     Indication: EPISTAXIS
     Dosage: SPRAY TO ONE NOSTRIL DAILY PRN
     Route: 045
     Dates: start: 20150326, end: 20150326
  2. STIMATE [Suspect]
     Active Substance: DESMOPRESSIN ACETATE
     Indication: VON WILLEBRAND^S DISEASE
     Dosage: SPRAY TO ONE NOSTRIL DAILY PRN
     Route: 045
     Dates: start: 20150326, end: 20150326

REACTIONS (5)
  - Flushing [None]
  - Heart rate increased [None]
  - Erythema [None]
  - Ocular hyperaemia [None]
  - Hypersensitivity [None]
